FAERS Safety Report 4970135-3 (Version None)
Quarter: 2006Q2

REPORT INFORMATION
  Report Type: 
  Country: None (occurrence: None)
  Receive Date: 20060406
  Receipt Date: 20060327
  Transmission Date: 20061013
  Serious: Yes (Other)
  Sender: FDA-Public Use
  Company Number: 2006042681

PATIENT
  Age: 60 Year
  Sex: Female
  Weight: 76.2043 kg

DRUGS (5)
  1. CELEBREX [Suspect]
     Indication: ARTHRITIS
     Dosage: (2 IN 1 D), ORAL
     Route: 048
  2. PREMARIN [Concomitant]
  3. DIOVAN HCT [Concomitant]
  4. VICODIN [Concomitant]
  5. SINUS (AMOXICILLIN TRIHYDRATE, BENZYDAMINE HYDROCHLORIDE, BROMHEXINE H [Concomitant]

REACTIONS (5)
  - ARTHRITIS [None]
  - ARTHROPATHY [None]
  - CONDITION AGGRAVATED [None]
  - FALL [None]
  - JOINT LOCK [None]
